FAERS Safety Report 5475315-9 (Version None)
Quarter: 2007Q3

REPORT INFORMATION
  Report Type: 
  Country: None (occurrence: None)
  Receive Date: 20070928
  Receipt Date: 20070920
  Transmission Date: 20080115
  Serious: Yes (Death)
  Sender: FDA-Public Use
  Company Number: 220017M07USA

PATIENT
  Age: 48 Year
  Sex: Female

DRUGS (1)
  1. SAIZEN [Suspect]
     Indication: GROWTH HORMONE DEFICIENCY
     Dosage: 0.25 MG, 1 IN 1 DAYS,
     Dates: start: 20070101, end: 20070901

REACTIONS (1)
  - DEATH [None]
